FAERS Safety Report 26005265 (Version 1)
Quarter: 2025Q4

REPORT INFORMATION
  Report Type: Spontaneous
  Country: US (occurrence: US)
  Receive Date: 20251106
  Receipt Date: 20251106
  Transmission Date: 20260119
  Serious: Yes (Other)
  Sender: SANOFI AVENTIS
  Company Number: US-SANOFI-02703119

PATIENT
  Age: 73 Year
  Sex: Female

DRUGS (1)
  1. LANTUS SOLOSTAR [Suspect]
     Active Substance: INSULIN GLARGINE
     Indication: Type 2 diabetes mellitus
     Dosage: ANYWHERE FROM 21 - 30 UNITS, QD

REACTIONS (3)
  - Atrial fibrillation [Unknown]
  - Generalised tonic-clonic seizure [Unknown]
  - Off label use [Unknown]
